FAERS Safety Report 14733782 (Version 1)
Quarter: 2018Q2

REPORT INFORMATION
  Report Type: Spontaneous
  Country: GB (occurrence: GB)
  Receive Date: 20180409
  Receipt Date: 20180409
  Transmission Date: 20180711
  Serious: Yes (Other)
  Sender: FDA-Public Use
  Company Number: GB-GLAXOSMITHKLINE-GB2018056551

PATIENT
  Age: 18 Year
  Sex: Female
  Weight: 50 kg

DRUGS (1)
  1. FLIXONASE [Suspect]
     Active Substance: FLUTICASONE PROPIONATE
     Indication: SINUSITIS
     Dosage: IN EACH NOSTRIL
     Route: 045
     Dates: start: 20180224

REACTIONS (2)
  - Dysphonia [Not Recovered/Not Resolved]
  - Product dropper issue [Unknown]

NARRATIVE: CASE EVENT DATE: 20180314
